FAERS Safety Report 10601518 (Version 2)
Quarter: 2014Q4

REPORT INFORMATION
  Report Type: Spontaneous
  Country: US (occurrence: US)
  Receive Date: 20141124
  Receipt Date: 20141211
  Transmission Date: 20150529
  Serious: Yes (Death)
  Sender: FDA-Public Use
  Company Number: US-PFIZER INC-2014321219

PATIENT
  Age: 82 Year
  Sex: Male
  Weight: 76.19 kg

DRUGS (4)
  1. ZOMETA [Concomitant]
     Active Substance: ZOLEDRONIC ACID
     Indication: NEOPLASM MALIGNANT
     Dosage: UNK
  2. LYRICA [Suspect]
     Active Substance: PREGABALIN
     Indication: PAIN IN EXTREMITY
     Dosage: 150 MG, 1X/DAY (75 MG, 2 CAPSULES AT NIGHT)
  3. ZTANDI [Concomitant]
     Indication: NEOPLASM MALIGNANT
     Dosage: UNK
  4. DAPSONE. [Concomitant]
     Active Substance: DAPSONE
     Dosage: UNK

REACTIONS (1)
  - Prostate cancer [Fatal]

NARRATIVE: CASE EVENT DATE: 2009
